FAERS Safety Report 11467925 (Version 1)
Quarter: 2015Q3

REPORT INFORMATION
  Report Type: Spontaneous
  Country: US (occurrence: US)
  Receive Date: 20150908
  Receipt Date: 20150908
  Transmission Date: 20151125
  Serious: Yes (Hospitalization)
  Sender: FDA-Public Use
  Company Number: US-TARO PHARMACEUTICALS USA.,INC-2015SUN01901

PATIENT
  Age: 2 Year
  Sex: Male

DRUGS (1)
  1. WARFARIN [Suspect]
     Active Substance: WARFARIN
     Indication: HYPERCOAGULATION
     Route: 065

REACTIONS (2)
  - Cerebral infarction [Recovered/Resolved]
  - Anticoagulation drug level below therapeutic [Recovered/Resolved]
